FAERS Safety Report 17538019 (Version 4)
Quarter: 2020Q4

REPORT INFORMATION
  Report Type: Spontaneous
  Country: JP (occurrence: JP)
  Receive Date: 20200313
  Receipt Date: 20201001
  Transmission Date: 20210113
  Serious: Yes (Death, Hospitalization, Other)
  Sender: FDA-Public Use
  Company Number: JP-ROCHE-2550067

PATIENT
  Age: 61 Year
  Sex: Male
  Weight: 76 kg

DRUGS (4)
  1. CARBOPLATIN. [Concomitant]
     Active Substance: CARBOPLATIN
     Indication: SMALL CELL LUNG CANCER
     Dosage: AUC 5 / DOSE
     Route: 041
     Dates: start: 20190522, end: 20190904
  2. TECENTRIQ [Suspect]
     Active Substance: ATEZOLIZUMAB
     Indication: SMALL CELL LUNG CANCER
     Dosage: LAST DOSE RECEIVED ON 26/SEP/2019
     Route: 041
     Dates: start: 20190904
  3. LASTET [Concomitant]
     Active Substance: ETOPOSIDE
     Indication: SMALL CELL LUNG CANCER
     Route: 041
     Dates: start: 20190522, end: 20190906
  4. CALSED [Suspect]
     Active Substance: AMRUBICIN HYDROCHLORIDE
     Indication: SMALL CELL LUNG CANCER
     Route: 041
     Dates: start: 20191023

REACTIONS (5)
  - Bronchitis [Unknown]
  - Interstitial lung disease [Recovered/Resolved]
  - Infected neoplasm [Unknown]
  - Sepsis [Fatal]
  - Myelosuppression [Unknown]

NARRATIVE: CASE EVENT DATE: 20191022
